FAERS Safety Report 12495786 (Version 2)
Quarter: 2016Q3

REPORT INFORMATION
  Report Type: Spontaneous
  Country: US (occurrence: US)
  Receive Date: 20160624
  Receipt Date: 20160913
  Transmission Date: 20161109
  Serious: No
  Sender: FDA-Public Use
  Company Number: US-INCYTE CORPORATION-2016IN003589

PATIENT
  Age: 69 Year
  Sex: Male

DRUGS (1)
  1. JAKAFI [Suspect]
     Active Substance: RUXOLITINIB
     Indication: POLYCYTHAEMIA VERA
     Dosage: 10 MG, BID
     Route: 048
     Dates: start: 20160514

REACTIONS (5)
  - Diarrhoea [Unknown]
  - Nausea [Unknown]
  - Haematocrit decreased [Unknown]
  - Night sweats [Recovered/Resolved]
  - Haematocrit increased [Unknown]

NARRATIVE: CASE EVENT DATE: 20160603
